FAERS Safety Report 16246835 (Version 2)
Quarter: 2019Q2

REPORT INFORMATION
  Report Type: Spontaneous
  Country: DK (occurrence: DK)
  Receive Date: 20190427
  Receipt Date: 20190503
  Transmission Date: 20190711
  Serious: Yes (Other)
  Sender: FDA-Public Use
  Company Number: DK-ACCORD-124221

PATIENT
  Age: 38 Year
  Sex: Female

DRUGS (6)
  1. QUETIAPINE ORION [Suspect]
     Active Substance: QUETIAPINE FUMARATE
     Indication: PSYCHOTIC DISORDER
     Dosage: DOSE: START 25 MG, STEPPED UP TO 200 MG FROM APR2015
     Route: 048
     Dates: start: 20150211, end: 20160302
  2. QUETIAPINE SANDOZ [Suspect]
     Active Substance: QUETIAPINE
     Indication: PSYCHOTIC DISORDER
     Dosage: DOSE: START 25 MG, TAP UP TO 200 MG FROM APR 2015
     Route: 048
     Dates: start: 20150211, end: 20160302
  3. OXAPAX [Suspect]
     Active Substance: OXAZEPAM
     Indication: SEDATION
     Dosage: DOSE: 1/2 TABLET IF NEEDED. MAX 3 TABLETS DAILY. STRENGTH: 15 MG.
     Route: 048
     Dates: start: 20150810, end: 20160302
  4. SEROQUEL [Suspect]
     Active Substance: QUETIAPINE FUMARATE
     Indication: PSYCHOTIC DISORDER
     Dosage: DOSE: START 25 MG, STEPPED UP TO 200 MG FROM APR2015
     Route: 048
     Dates: start: 20150211, end: 20160302
  5. QUETIAPINE ACCORD [Suspect]
     Active Substance: QUETIAPINE
     Indication: PSYCHOTIC DISORDER
     Dosage: DOSE: START 25 MG, TAP UP TO 200 MG FROM APR 2015
     Route: 048
     Dates: start: 20150211, end: 20160302
  6. QUETIAPINE ACTAVIS [Suspect]
     Active Substance: QUETIAPINE
     Indication: PSYCHOTIC DISORDER
     Dosage: DOSE: START 25 MG, STEPPED UP TO 200 MG FROM APR2015
     Route: 048
     Dates: start: 20150211, end: 20160402

REACTIONS (8)
  - Dysphonia [Not Recovered/Not Resolved]
  - Fatigue [Not Recovered/Not Resolved]
  - Memory impairment [Recovered/Resolved]
  - Alopecia [Not Recovered/Not Resolved]
  - Menorrhagia [Not Recovered/Not Resolved]
  - Myxoedema [Not Recovered/Not Resolved]
  - Depressed mood [Unknown]
  - Disturbance in attention [Recovered/Resolved]

NARRATIVE: CASE EVENT DATE: 201710
